FAERS Safety Report 13100410 (Version 1)
Quarter: 2017Q1

REPORT INFORMATION
  Report Type: Spontaneous
  Country: US (occurrence: US)
  Receive Date: 20170109
  Receipt Date: 20170109
  Transmission Date: 20170428
  Serious: Yes (Life-Threatening, Other)
  Sender: FDA-Public Use
  Company Number: None

PATIENT
  Age: 87 Year
  Weight: 65.25 kg

DRUGS (8)
  1. SIMVASTATIN. [Concomitant]
     Active Substance: SIMVASTATIN
  2. CLOPIDOGREL [Concomitant]
     Active Substance: CLOPIDOGREL BISULFATE
  3. ISOSORBIDE MONONITRATE. [Concomitant]
     Active Substance: ISOSORBIDE MONONITRATE
  4. PYRIDOSTIGMINE [Suspect]
     Active Substance: PYRIDOSTIGMINE
     Indication: MYASTHENIA GRAVIS
     Dosage: ?          QUANTITY:1 TABLET(S);?
     Route: 048
  5. PREVACID [Concomitant]
     Active Substance: LANSOPRAZOLE
  6. NITROGLYCERINE [Concomitant]
     Active Substance: NITROGLYCERIN
  7. GAVISCON [Concomitant]
     Active Substance: ALUMINUM HYDROXIDE\MAGNESIUM CARBONATE
  8. ASA [Concomitant]
     Active Substance: ASPIRIN

REACTIONS (10)
  - Myalgia [None]
  - Sensory disturbance [None]
  - Vomiting [None]
  - Dizziness [None]
  - Penile size reduced [None]
  - Diarrhoea [None]
  - Nausea [None]
  - Pain [None]
  - Ageusia [None]
  - Suicidal ideation [None]

NARRATIVE: CASE EVENT DATE: 20151115
